FAERS Safety Report 4316070-5 (Version None)
Quarter: 2004Q1

REPORT INFORMATION
  Report Type: 
  Country: None (occurrence: None)
  Receive Date: 20040309
  Receipt Date: 20040225
  Transmission Date: 20041129
  Serious: Yes (Hospitalization)
  Sender: FDA-Public Use
  Company Number: HQWYE315125FEB04

PATIENT
  Age: 79 Year
  Sex: Female

DRUGS (5)
  1. CORDARONE [Suspect]
     Indication: ARRHYTHMIA
     Dosage: 200  MG 1X PER 1 DAY
     Route: 048
  2. NEXIUM [Suspect]
     Indication: OESOPHAGEAL DISORDER
     Dosage: 40 MG 1X PER 1 DAY
     Route: 048
     Dates: start: 20030120, end: 20040123
  3. ASPIRIN [Concomitant]
  4. FRAGMIN [Concomitant]
  5. CONCOR (BISOPROLOL) [Concomitant]

REACTIONS (3)
  - ATRIAL FIBRILLATION [None]
  - INAPPROPRIATE ANTIDIURETIC HORMONE SECRETION [None]
  - TACHYCARDIA [None]
